FAERS Safety Report 9308253 (Version 1)
Quarter: 2013Q2

REPORT INFORMATION
  Report Type: Spontaneous
  Country: KR (occurrence: KR)
  Receive Date: 20130524
  Receipt Date: 20130524
  Transmission Date: 20140414
  Serious: Yes (Other)
  Sender: FDA-Public Use
  Company Number: KR-PFIZER INC-2013154724

PATIENT
  Sex: Female

DRUGS (1)
  1. AROMASIN [Suspect]
     Indication: BREAST CANCER
     Dosage: UNK
     Route: 048
     Dates: start: 201303

REACTIONS (2)
  - Uterine leiomyoma [Unknown]
  - Vaginal haemorrhage [Not Recovered/Not Resolved]
